FAERS Safety Report 5700081-9 (Version None)
Quarter: 2008Q2

REPORT INFORMATION
  Report Type: 
  Country: None (occurrence: None)
  Receive Date: 20080410
  Receipt Date: 20080401
  Transmission Date: 20081010
  Serious: Yes (Other)
  Sender: FDA-Public Use
  Company Number: US-ROCHE-556377

PATIENT
  Sex: Female

DRUGS (1)
  1. BONIVA [Suspect]
     Indication: DRUG USE FOR UNKNOWN INDICATION
     Dosage: FORM: PILL
     Route: 065

REACTIONS (5)
  - ARTHRALGIA [None]
  - DYSPEPSIA [None]
  - DYSPHAGIA [None]
  - PAIN IN EXTREMITY [None]
  - THROMBOSIS [None]
